FAERS Safety Report 8574897-8 (Version None)
Quarter: 2012Q3

REPORT INFORMATION
  Report Type: 
  Country: None (occurrence: None)
  Receive Date: 20120807
  Receipt Date: 20110930
  Transmission Date: 20120928
  Serious: Yes (Death)
  Sender: FDA-Public Use
  Company Number: DE-CELGENEUS-062-50794-12053188

PATIENT
  Age: 90 Year
  Sex: Male
  Weight: 67 kg

DRUGS (3)
  1. VIDAZA [Suspect]
     Route: 058
     Dates: start: 20100927, end: 20101003
  2. VIDAZA [Suspect]
     Dosage: 100 MG
     Route: 058
     Dates: start: 20100830
  3. VIDAZA [Suspect]
     Dosage: 100 MG
     Route: 058
     Dates: start: 20100713

REACTIONS (6)
  - GRANULOCYTES ABNORMAL [None]
  - FATIGUE [None]
  - NEOPLASM [None]
  - HAEMOGLOBIN ABNORMAL [None]
  - DIARRHOEA [None]
  - CONSTIPATION [None]
